FAERS Safety Report 11135545 (Version 1)
Quarter: 2015Q2

REPORT INFORMATION
  Report Type: Spontaneous
  Country: US (occurrence: None)
  Receive Date: 20150522
  Receipt Date: 20150522
  Transmission Date: 20150821
  Serious: Yes (Death, Hospitalization)
  Sender: FDA-Public Use
  Company Number: None

PATIENT
  Age: 60 Year
  Sex: Male
  Weight: 105.3 kg

DRUGS (7)
  1. HYDROCODONE BITARTRATE AND ACETAMINOPHEN [Concomitant]
     Active Substance: ACETAMINOPHEN\HYDROCODONE BITARTRATE
  2. DIPHENHYDRAMINE HYDROCHLORIDE. [Suspect]
     Active Substance: DIPHENHYDRAMINE HYDROCHLORIDE
     Dates: end: 20000101
  3. ALUMINUM HYDROXIDE/MAGNESIUM HYDROXIDE/SIMETHICONE [Suspect]
     Active Substance: ALUMINUM HYDROXIDE\MAGNESIUM HYDROXIDE\SIMETHICONE
     Dates: end: 20000101
  4. NEBIVOLOL [Concomitant]
     Active Substance: NEBIVOLOL
  5. LEVAQUIN [Concomitant]
     Active Substance: LEVOFLOXACIN
  6. OXYCODONE [Concomitant]
     Active Substance: OXYCODONE
  7. LIDOCAINE HYDROCHLORIDE. [Suspect]
     Active Substance: LIDOCAINE HYDROCHLORIDE
     Dates: end: 20000101

REACTIONS (15)
  - Weight decreased [None]
  - Discomfort [None]
  - Pyrexia [None]
  - Disorientation [None]
  - Seizure [None]
  - Oropharyngeal cancer [None]
  - Hypotension [None]
  - Hypoxia [None]
  - Speech disorder [None]
  - Food intolerance [None]
  - Constipation [None]
  - Pain [None]
  - Bradycardia [None]
  - Pulse absent [None]
  - Stomatitis [None]

NARRATIVE: CASE EVENT DATE: 20150515
